FAERS Safety Report 19626109 (Version 1)
Quarter: 2021Q3

REPORT INFORMATION
  Report Type: Spontaneous
  Country: US (occurrence: US)
  Receive Date: 20210728
  Receipt Date: 20210728
  Transmission Date: 20211014
  Serious: Yes (Life-Threatening)
  Sender: FDA-Public Use
  Company Number: None

PATIENT
  Age: 60 Year
  Sex: Male
  Weight: 98.1 kg

DRUGS (9)
  1. NSAID [Concomitant]
     Active Substance: UNSPECIFIED INGREDIENT
  2. LISINOPRIL 10 MG [Suspect]
     Active Substance: LISINOPRIL
     Indication: BLOOD PRESSURE MEASUREMENT
     Dosage: QUANTITY:1 TABLET(S);?
     Route: 048
     Dates: start: 20210621, end: 20210716
  3. IBUPROFEN. [Concomitant]
     Active Substance: IBUPROFEN
  4. ALLOPURINOL. [Concomitant]
     Active Substance: ALLOPURINOL
  5. COLCHINE [Concomitant]
     Active Substance: COLCHICINE
  6. FLONASE [Concomitant]
     Active Substance: FLUTICASONE PROPIONATE
  7. KIRKLAND TRIPLE JOINT HEALTH [Concomitant]
  8. FEXOFENADINE [Concomitant]
     Active Substance: FEXOFENADINE HYDROCHLORIDE
  9. INDOMETHACIN. [Concomitant]
     Active Substance: INDOMETHACIN

REACTIONS (6)
  - Fatigue [None]
  - Manufacturing issue [None]
  - Blood pressure decreased [None]
  - Nausea [None]
  - Product quality issue [None]
  - Electrolyte imbalance [None]

NARRATIVE: CASE EVENT DATE: 20210704
